FAERS Safety Report 14779654 (Version 9)
Quarter: 2019Q2

REPORT INFORMATION
  Report Type: Spontaneous
  Country: CO (occurrence: CO)
  Receive Date: 20180419
  Receipt Date: 20190530
  Transmission Date: 20190711
  Serious: Yes (Death, Hospitalization, Other)
  Sender: FDA-Public Use
  Company Number: CO-CELGENEUS-COL-20171006384

PATIENT
  Age: 74 Year
  Sex: Male

DRUGS (2)
  1. VIDAZA [Suspect]
     Active Substance: AZACITIDINE
     Indication: MYELODYSPLASTIC SYNDROME
     Dosage: 100 MILLIGRAM
     Route: 058
     Dates: start: 20160601, end: 20181122
  2. VIDAZA [Suspect]
     Active Substance: AZACITIDINE
     Dosage: 100 MILLIGRAM
     Route: 058
     Dates: end: 20190319

REACTIONS (13)
  - Discomfort [Not Recovered/Not Resolved]
  - Decreased immune responsiveness [Unknown]
  - Pyrexia [Unknown]
  - Urinary tract infection [Not Recovered/Not Resolved]
  - Gastrointestinal infection [Recovered/Resolved]
  - Urinary tract infection [Unknown]
  - Anaemia [Recovered/Resolved]
  - Death [Fatal]
  - Anaemia [Unknown]
  - Urinary tract infection [Not Recovered/Not Resolved]
  - Chills [Not Recovered/Not Resolved]
  - Immunosuppression [Not Recovered/Not Resolved]
  - Blood iron increased [Unknown]

NARRATIVE: CASE EVENT DATE: 20171011
